FAERS Safety Report 11679547 (Version 2)
Quarter: 2015Q4

REPORT INFORMATION
  Report Type: Spontaneous
  Country: US (occurrence: US)
  Receive Date: 20151027
  Receipt Date: 20151104
  Transmission Date: 20160304
  Serious: No
  Sender: FDA-Public Use
  Company Number: US-ELI_LILLY_AND_COMPANY-US201008002242

PATIENT
  Age: 76 Year
  Sex: Female

DRUGS (3)
  1. FORTEO [Suspect]
     Active Substance: TERIPARATIDE
     Dosage: 20 UG, DAILY (1/D)
     Route: 065
     Dates: end: 20101130
  2. FORTEO [Suspect]
     Active Substance: TERIPARATIDE
     Dosage: 20 UG, DAILY (1/D)
     Route: 065
  3. FORTEO [Suspect]
     Active Substance: TERIPARATIDE
     Indication: OSTEOPOROSIS
     Dosage: 20 UG, DAILY (1/D)
     Route: 065
     Dates: start: 20090328

REACTIONS (13)
  - Blood pressure fluctuation [Not Recovered/Not Resolved]
  - Dental caries [Unknown]
  - Insomnia [Recovered/Resolved]
  - Nausea [Unknown]
  - Hypertension [Recovered/Resolved]
  - Fatigue [Recovered/Resolved]
  - Influenza [Recovering/Resolving]
  - Restless legs syndrome [Recovering/Resolving]
  - Somnolence [Recovered/Resolved]
  - Initial insomnia [Recovered/Resolved]
  - Discomfort [Unknown]
  - Sleep disorder [Recovered/Resolved]
  - Asthenia [Unknown]

NARRATIVE: CASE EVENT DATE: 201009
